FAERS Safety Report 9051370 (Version 1)
Quarter: 2013Q1

REPORT INFORMATION
  Report Type: Spontaneous
  Country: FR (occurrence: FR)
  Receive Date: 20130206
  Receipt Date: 20130206
  Transmission Date: 20140127
  Serious: Yes (Hospitalization, Other)
  Sender: FDA-Public Use
  Company Number: FR-PFIZER INC-2013043255

PATIENT
  Age: 74 Year
  Sex: Male

DRUGS (6)
  1. LYRICA [Suspect]
     Indication: TUMOUR PAIN
     Dosage: 150 MG, 2X/DAY
     Route: 048
     Dates: end: 201209
  2. KETAMINE [Suspect]
     Indication: TUMOUR PAIN
     Dosage: 5 MG, 2X/DAY
     Route: 042
     Dates: end: 201209
  3. LAROXYL [Suspect]
     Indication: TUMOUR PAIN
     Dosage: 20 GTT, 1X/DAY
     Route: 048
     Dates: end: 201209
  4. ACUPAN [Suspect]
     Indication: TUMOUR PAIN
     Dosage: 120 MG, 1X/DAY
     Route: 042
  5. MORPHINE [Suspect]
     Indication: TUMOUR PAIN
     Dosage: 180 MG, 1X/DAY
     Route: 042
  6. INEXIUM [Concomitant]
     Dosage: 1 DF, 1X/DAY
     Route: 048

REACTIONS (4)
  - Depressed level of consciousness [Recovered/Resolved]
  - Hypotension [Unknown]
  - Hypoxia [Unknown]
  - Chest pain [Unknown]
